FAERS Safety Report 8774874 (Version 1)
Quarter: 2012Q4

REPORT INFORMATION
  Report Type: 
  Country: DE (occurrence: DE)
  Receive Date: 20120910
  Receipt Date: 20120910
  Transmission Date: 20130627
  Serious: Yes (Other)
  Sender: FDA-Public Use
  Company Number: DE-JNJFOC-20120814886

PATIENT
  Age: 40 Year
  Sex: Female
  Weight: 84 kg

DRUGS (13)
  1. RISPERDAL CONSTA [Suspect]
     Indication: PSYCHOTIC DISORDER
     Route: 030
     Dates: end: 20111124
  2. RISPERDAL CONSTA [Suspect]
     Indication: PSYCHOTIC DISORDER
     Route: 030
     Dates: start: 20110401
  3. SEROQUEL [Suspect]
     Indication: PSYCHOTIC DISORDER
     Route: 048
     Dates: end: 20111124
  4. SEROQUEL [Suspect]
     Indication: PSYCHOTIC DISORDER
     Route: 048
     Dates: start: 20110409
  5. PROMETHAZINE [Suspect]
     Indication: RESTLESSNESS
     Route: 048
     Dates: start: 20110527
  6. PROMETHAZINE [Suspect]
     Indication: RESTLESSNESS
     Route: 048
  7. PROMETHAZINE [Suspect]
     Indication: RESTLESSNESS
     Route: 048
     Dates: end: 20111124
  8. CARBAMAZEPINE [Concomitant]
     Indication: TRIGEMINAL NEURALGIA
     Route: 048
     Dates: start: 20110927, end: 20111124
  9. IBUPROFEN [Concomitant]
     Indication: TRIGEMINAL NEURALGIA
     Route: 048
     Dates: start: 20110927, end: 20111124
  10. BETAMETHASON [Concomitant]
     Indication: MATERNAL THERAPY TO ENHANCE FOETAL LUNG MATURITY
     Route: 030
     Dates: start: 20111120, end: 20111121
  11. ACETYLSALICYLSAEURE [Concomitant]
     Indication: PRE-ECLAMPSIA
     Route: 048
     Dates: end: 20111120
  12. MELPERON [Concomitant]
     Indication: PSYCHOTIC DISORDER
     Route: 048
     Dates: start: 20110409, end: 20110516
  13. TOLPERISONE [Concomitant]
     Indication: PRODUCT USED FOR UNKNOWN INDICATION
     Route: 048
     Dates: start: 20110409, end: 20110516

REACTIONS (6)
  - Gestational diabetes [Recovered/Resolved]
  - Premature labour [Recovered/Resolved]
  - Pre-eclampsia [Recovered/Resolved]
  - Trigeminal neuralgia [Unknown]
  - Exposure during pregnancy [Recovered/Resolved]
  - Inappropriate schedule of drug administration [Recovered/Resolved]
